FAERS Safety Report 14511253 (Version 3)
Quarter: 2018Q1

REPORT INFORMATION
  Report Type: Report from Study
  Country: US (occurrence: US)
  Receive Date: 20180209
  Receipt Date: 20180330
  Transmission Date: 20180509
  Serious: Yes (Other)
  Sender: FDA-Public Use
  Company Number: US-TESARO, INC-US-2017TSO04557

PATIENT

DRUGS (7)
  1. ZEJULA [Suspect]
     Active Substance: NIRAPARIB
     Dosage: 100 MG, QD
     Route: 048
  2. ZEJULA [Suspect]
     Active Substance: NIRAPARIB
     Indication: OVARIAN CANCER METASTATIC
     Dosage: 300 MG, QD
     Route: 048
     Dates: start: 20171212, end: 20171216
  3. ZEJULA [Suspect]
     Active Substance: NIRAPARIB
     Dosage: 200 MG, QD
     Route: 048
     Dates: end: 20180117
  4. ZEJULA [Suspect]
     Active Substance: NIRAPARIB
     Dosage: 100 MG, QD
     Route: 048
     Dates: start: 20180201
  5. SYNTHROID [Concomitant]
     Active Substance: LEVOTHYROXINE SODIUM
     Indication: THYROID DISORDER
     Dosage: UNK
  6. ZEJULA [Suspect]
     Active Substance: NIRAPARIB
     Indication: OVARIAN CANCER
     Dosage: 300 MG, QD
     Route: 048
  7. ZEJULA [Suspect]
     Active Substance: NIRAPARIB
     Indication: OVARIAN CANCER METASTATIC
     Dosage: 100 MG, QD
     Route: 048
     Dates: start: 20171220

REACTIONS (29)
  - Thyroid function test abnormal [Not Recovered/Not Resolved]
  - Palpitations [Not Recovered/Not Resolved]
  - Autoimmune disorder [Not Recovered/Not Resolved]
  - Feeling abnormal [Not Recovered/Not Resolved]
  - Arthralgia [Not Recovered/Not Resolved]
  - Nausea [Recovering/Resolving]
  - Haemoglobin decreased [Recovering/Resolving]
  - Pain [Not Recovered/Not Resolved]
  - Insomnia [Not Recovered/Not Resolved]
  - Nasopharyngitis [Not Recovered/Not Resolved]
  - Dyspepsia [Not Recovered/Not Resolved]
  - Headache [Not Recovered/Not Resolved]
  - Asthenia [Not Recovered/Not Resolved]
  - Blood creatinine increased [Not Recovered/Not Resolved]
  - Blood pressure increased [Not Recovered/Not Resolved]
  - Neutrophil count decreased [Recovering/Resolving]
  - Gastrointestinal tract irritation [Not Recovered/Not Resolved]
  - Malaise [Not Recovered/Not Resolved]
  - Energy increased [Not Recovered/Not Resolved]
  - Emotional distress [Unknown]
  - Decreased appetite [Not Recovered/Not Resolved]
  - Abdominal pain [Unknown]
  - Platelet count decreased [Recovering/Resolving]
  - Hot flush [Not Recovered/Not Resolved]
  - Fatigue [Recovering/Resolving]
  - Mass [Unknown]
  - Blood urea increased [Not Recovered/Not Resolved]
  - Laboratory test abnormal [Recovering/Resolving]
  - White blood cell count decreased [Not Recovered/Not Resolved]
